FAERS Safety Report 16025203 (Version 1)
Quarter: 2019Q1

REPORT INFORMATION
  Report Type: Spontaneous
  Country: US (occurrence: US)
  Receive Date: 20190301
  Receipt Date: 20190301
  Transmission Date: 20190418
  Serious: No
  Sender: FDA-Public Use
  Company Number: US-SA-2019SA058746

PATIENT
  Sex: Female

DRUGS (7)
  1. KEVZARA [Suspect]
     Active Substance: SARILUMAB
  2. NORTREL [LEVONORGESTREL] [Concomitant]
  3. VYVANSE [Concomitant]
     Active Substance: LISDEXAMFETAMINE DIMESYLATE
  4. MELOXICAM. [Concomitant]
     Active Substance: MELOXICAM
  5. FOLIC ACID. [Concomitant]
     Active Substance: FOLIC ACID
  6. HUMIRA [Concomitant]
     Active Substance: ADALIMUMAB
  7. METHOTREXATE. [Concomitant]
     Active Substance: METHOTREXATE

REACTIONS (2)
  - Nasopharyngitis [Recovered/Resolved]
  - Red blood cell sedimentation rate increased [Recovered/Resolved]
